FAERS Safety Report 12887066 (Version 1)
Quarter: 2016Q4

REPORT INFORMATION
  Report Type: Spontaneous
  Country: US (occurrence: US)
  Receive Date: 20161026
  Receipt Date: 20161026
  Transmission Date: 20170207
  Serious: No
  Sender: FDA-Public Use
  Company Number: US-GLAXOSMITHKLINE-US2016157816

PATIENT
  Age: 48 Year
  Sex: Male

DRUGS (3)
  1. KEPPRA [Concomitant]
     Active Substance: LEVETIRACETAM
  2. TANZEUM [Suspect]
     Active Substance: ALBIGLUTIDE
     Indication: GLUCOSE TOLERANCE IMPAIRED
     Dosage: 30 MG, WE
     Route: 042
     Dates: start: 201506
  3. EXFORGE [Concomitant]
     Active Substance: AMLODIPINE BESYLATE\VALSARTAN

REACTIONS (5)
  - Weight decreased [Recovered/Resolved]
  - Drug dose omission [Unknown]
  - Therapeutic response unexpected [Unknown]
  - Energy increased [Unknown]
  - Off label use [Unknown]

NARRATIVE: CASE EVENT DATE: 201506
